FAERS Safety Report 4381119-0 (Version None)
Quarter: 2004Q2

REPORT INFORMATION
  Report Type: 
  Country: None (occurrence: None)
  Receive Date: 20040616
  Receipt Date: 20040603
  Transmission Date: 20050107
  Serious: Yes (Hospitalization)
  Sender: FDA-Public Use
  Company Number: MK200406-0095-1

PATIENT
  Age: 81 Year
  Sex: Female

DRUGS (6)
  1. FLUOXETINE [Suspect]
     Dosage: 20 MG/DAY
  2. PENTOXIFYLLINE [Concomitant]
  3. LISINOPRIL [Concomitant]
  4. HYDROXYZINE [Concomitant]
  5. HYDROMORPHONE HCL [Concomitant]
  6. MONTELUKAST [Concomitant]

REACTIONS (3)
  - PAIN [None]
  - SEROTONIN SYNDROME [None]
  - SPINAL FRACTURE [None]
